FAERS Safety Report 7071173-X (Version None)
Quarter: 2010Q4

REPORT INFORMATION
  Report Type: 
  Country: None (occurrence: None)
  Receive Date: 20101029
  Receipt Date: 20101018
  Transmission Date: 20110411
  Serious: Yes (Other)
  Sender: FDA-Public Use
  Company Number: GB-CELGENEUS-167-20785-10101755

PATIENT
  Age: 47 Year
  Sex: Male

DRUGS (4)
  1. THALIDOMIDE [Suspect]
     Route: 048
  2. FENTANYL [Concomitant]
     Dosage: 250MCG/H
     Route: 065
  3. PREGABALIN [Concomitant]
     Route: 065
  4. METHADONE [Concomitant]
     Dosage: +10MG AS NEEDED
     Route: 048

REACTIONS (6)
  - BRADYCARDIA [None]
  - DISTURBANCE IN ATTENTION [None]
  - DIZZINESS [None]
  - HALLUCINATION [None]
  - MYOCLONUS [None]
  - SOMNOLENCE [None]
